FAERS Safety Report 7962768-7 (Version None)
Quarter: 2011Q4

REPORT INFORMATION
  Report Type: 
  Country: None (occurrence: None)
  Receive Date: 20111207
  Receipt Date: 20111202
  Transmission Date: 20120403
  Serious: Yes (Hospitalization)
  Sender: FDA-Public Use
  Company Number: JP-B.I. PHARMACEUTICALS,INC./RIDGEFIELD-2011-BP-27314NB

PATIENT
  Age: 77 Year
  Sex: Male

DRUGS (2)
  1. ASPIRIN [Concomitant]
  2. PRADAXA [Suspect]
     Indication: SPINAL CORD INFARCTION
     Dosage: 300 MG
     Route: 048
     Dates: start: 20110806, end: 20111114

REACTIONS (4)
  - INTESTINAL ISCHAEMIA [None]
  - INTESTINAL INFARCTION [None]
  - GASTROINTESTINAL HAEMORRHAGE [None]
  - ACTIVATED PARTIAL THROMBOPLASTIN TIME PROLONGED [None]
